FAERS Safety Report 26121094 (Version 1)
Quarter: 2025Q4

REPORT INFORMATION
  Report Type: Spontaneous
  Country: IL (occurrence: IL)
  Receive Date: 20251204
  Receipt Date: 20251204
  Transmission Date: 20260118
  Serious: Yes (Other)
  Sender: AMGEN
  Company Number: IL-AMGEN-ISRSP2025239500

PATIENT

DRUGS (1)
  1. BEVACIZUMAB [Suspect]
     Active Substance: BEVACIZUMAB
     Indication: Colorectal cancer metastatic
     Dosage: UNK
     Route: 065

REACTIONS (8)
  - Metastases to retroperitoneum [Unknown]
  - Post procedural haemorrhage [Unknown]
  - Anastomotic fistula [Unknown]
  - Deep vein thrombosis [Unknown]
  - Pneumonia [Unknown]
  - Post procedural complication [Unknown]
  - Therapy non-responder [Unknown]
  - Therapy partial responder [Unknown]
